FAERS Safety Report 9157207 (Version 2)
Quarter: 2013Q1

REPORT INFORMATION
  Report Type: Spontaneous
  Country: US (occurrence: None)
  Receive Date: 20130212
  Receipt Date: 20130212
  Transmission Date: 20140127
  Serious: Yes (Hospitalization)
  Sender: FDA-Public Use
  Company Number: USA/USA/13/0027667

PATIENT
  Age: 54 Year
  Sex: Male
  Weight: 113 kg

DRUGS (1)
  1. OMEPRAZOLE [Suspect]
     Indication: DYSPEPSIA
     Dosage: 20.6 MG, 1 IN 1 D, ORAL
     Route: 048
     Dates: start: 20130101, end: 20130106

REACTIONS (6)
  - Product solubility abnormal [None]
  - Malaise [None]
  - Intestinal obstruction [None]
  - Pneumonia [None]
  - Pulmonary embolism [None]
  - Product quality issue [None]
